FAERS Safety Report 10736422 (Version 3)
Quarter: 2015Q1

REPORT INFORMATION
  Report Type: Report from Study
  Country: US (occurrence: US)
  Receive Date: 20150126
  Receipt Date: 20150224
  Transmission Date: 20150721
  Serious: Yes (Hospitalization, Other)
  Sender: FDA-Public Use
  Company Number: US-AMGEN-USASL2015006017

PATIENT
  Age: 60 Year
  Sex: Female

DRUGS (1)
  1. ENBREL [Suspect]
     Active Substance: ETANERCEPT
     Indication: RHEUMATOID ARTHRITIS
     Dosage: 25 MG, 2 TIMES/WK
     Route: 065
     Dates: start: 20100301

REACTIONS (10)
  - Intervertebral disc operation [Recovered/Resolved]
  - Depression [Recovered/Resolved]
  - Back pain [Not Recovered/Not Resolved]
  - Spinal deformity [Recovered/Resolved]
  - Mobility decreased [Recovered/Resolved]
  - Exostosis [Recovered/Resolved]
  - Spinal osteoarthritis [Not Recovered/Not Resolved]
  - Body height decreased [Not Recovered/Not Resolved]
  - Spondylolisthesis [Recovered/Resolved]
  - Hip deformity [Not Recovered/Not Resolved]
